FAERS Safety Report 6858505-X (Version None)
Quarter: 2010Q3

REPORT INFORMATION
  Report Type: 
  Country: None (occurrence: None)
  Receive Date: 20100719
  Receipt Date: 20080408
  Transmission Date: 20110219
  Serious: No
  Sender: FDA-Public Use
  Company Number: US-PFIZER INC-2008013751

PATIENT
  Sex: Female

DRUGS (6)
  1. CHANTIX [Suspect]
     Indication: SMOKING CESSATION THERAPY
     Dates: start: 20080206
  2. PREMARIN [Concomitant]
  3. LORTAB [Concomitant]
  4. PAXIL [Concomitant]
  5. GLUCOPHAGE [Concomitant]
  6. CARTIA XT [Concomitant]

REACTIONS (1)
  - RASH [None]
